FAERS Safety Report 9741796 (Version 2)
Quarter: 2014Q2

REPORT INFORMATION
  Report Type: Spontaneous
  Country: US (occurrence: US)
  Receive Date: 20131210
  Receipt Date: 20140416
  Transmission Date: 20141212
  Serious: Yes (Other)
  Sender: FDA-Public Use
  Company Number: US-BAYER-2013-147913

PATIENT
  Age: 55 Year
  Sex: Female
  Weight: 78.46 kg

DRUGS (7)
  1. BETASERON [Suspect]
     Indication: RELAPSING-REMITTING MULTIPLE SCLEROSIS
     Dosage: 0.3 MG, QOD
     Route: 058
     Dates: start: 200405, end: 201303
  2. BETASERON [Suspect]
     Indication: RELAPSING-REMITTING MULTIPLE SCLEROSIS
     Dosage: 0.3 MG, TIW
     Route: 058
     Dates: start: 200405, end: 201303
  3. LISINOPRIL [Concomitant]
     Indication: HYPERTENSION
     Dosage: 10 MG, QD
     Route: 048
  4. LISINOPRIL [Concomitant]
     Indication: HYPERTENSION
     Dosage: 20 MG, QD
     Route: 048
  5. BIOTIN [Concomitant]
     Dosage: 100000 MG, QD
  6. INFLUENZA VACCINE [INFLUENZA VACCINE] [Concomitant]
     Dosage: UNK
     Dates: start: 20130909, end: 20130909
  7. VITAMIN D [Concomitant]
     Dosage: 1 DF, OW

REACTIONS (8)
  - Breast cancer stage II [None]
  - Pain [None]
  - Drug dose omission [None]
  - Multiple sclerosis [None]
  - Vision blurred [None]
  - Musculoskeletal stiffness [None]
  - Intentional product misuse [None]
  - Seasonal allergy [None]
